FAERS Safety Report 24896324 (Version 1)
Quarter: 2025Q1

REPORT INFORMATION
  Report Type: Spontaneous
  Country: US (occurrence: US)
  Receive Date: 20250128
  Receipt Date: 20250128
  Transmission Date: 20250408
  Serious: No
  Sender: MEITHEAL PHARMACEUTICALS
  Company Number: US-MEITHEAL-2024MPSPO00368

PATIENT
  Age: 81 Year
  Sex: Male

DRUGS (2)
  1. REGADENOSON [Suspect]
     Active Substance: REGADENOSON
     Indication: Cardiac stress test
     Route: 065
     Dates: start: 20241030
  2. REGADENOSON [Suspect]
     Active Substance: REGADENOSON

REACTIONS (1)
  - Hypotension [Recovered/Resolved]
